FAERS Safety Report 6551012-3 (Version None)
Quarter: 2010Q1

REPORT INFORMATION
  Report Type: 
  Country: None (occurrence: None)
  Receive Date: 20100125
  Receipt Date: 20100118
  Transmission Date: 20100710
  Serious: Yes (Death)
  Sender: FDA-Public Use
  Company Number: NL-AMGEN-UK380238

PATIENT
  Sex: Male

DRUGS (8)
  1. ARANESP [Suspect]
     Indication: ANAEMIA
     Route: 058
     Dates: start: 20091023, end: 20091028
  2. CARBOPLATIN [Concomitant]
     Dates: start: 20090929, end: 20090930
  3. GEMCITABINE [Concomitant]
     Dates: start: 20090929, end: 20091007
  4. CLINDAMYCIN [Concomitant]
  5. ACETYLCYSTEINE [Concomitant]
  6. PREDNISOLON [Concomitant]
  7. SYMBICORT [Concomitant]
     Route: 055
  8. OMEPRAZOLE [Concomitant]

REACTIONS (1)
  - MALIGNANT NEOPLASM PROGRESSION [None]
